FAERS Safety Report 6903141-X (Version None)
Quarter: 2010Q3

REPORT INFORMATION
  Report Type: 
  Country: None (occurrence: None)
  Receive Date: 20100803
  Receipt Date: 20080825
  Transmission Date: 20110219
  Serious: Yes (Other)
  Sender: FDA-Public Use
  Company Number: US-PFIZER INC-2008070892

PATIENT
  Sex: Female
  Weight: 86.2 kg

DRUGS (7)
  1. LYRICA [Suspect]
     Indication: FIBROMYALGIA
     Route: 048
     Dates: start: 20070901, end: 20080601
  2. ALL OTHER NON-THERAPEUTIC PRODUCTS [Suspect]
  3. CATAPRES [Concomitant]
  4. TRIAMTERENE AND HYDROCHLOROTHIAZIDE [Concomitant]
  5. CALAN [Concomitant]
  6. LEVOX [Concomitant]
  7. NEXIUM [Concomitant]

REACTIONS (10)
  - COGNITIVE DISORDER [None]
  - DEPRESSION [None]
  - HALLUCINATION [None]
  - HYPOPHAGIA [None]
  - ILL-DEFINED DISORDER [None]
  - NIGHTMARE [None]
  - ORAL PAIN [None]
  - PARAESTHESIA [None]
  - SLEEP TERROR [None]
  - UNEVALUABLE EVENT [None]
